FAERS Safety Report 4956749-5 (Version None)
Quarter: 2006Q1

REPORT INFORMATION
  Report Type: 
  Country: None (occurrence: None)
  Receive Date: 20060329
  Receipt Date: 20060321
  Transmission Date: 20060701
  Serious: Yes (Hospitalization)
  Sender: FDA-Public Use
  Company Number: US-GILEAD-2006-0009340

PATIENT
  Age: 52 Year
  Sex: Male
  Weight: 129 kg

DRUGS (8)
  1. BLINDED EMTRICITABINE/TENOFOVIR DF [Suspect]
     Indication: HIV INFECTION
     Route: 048
     Dates: start: 20060215
  2. BLINDED ABACAVIR/LAMIVUDINE [Suspect]
     Indication: HIV INFECTION
     Route: 048
     Dates: start: 20060215
  3. ATAZANAVIR [Suspect]
     Indication: HIV INFECTION
     Route: 048
     Dates: start: 20060215
  4. RITONAVIR [Suspect]
     Indication: HIV INFECTION
     Route: 048
     Dates: start: 20060215
  5. NORVASC [Concomitant]
  6. FAMOTIDINE [Concomitant]
  7. HYDROCHLOROTHIAZIDE [Concomitant]
  8. LIPITOR [Concomitant]

REACTIONS (4)
  - AMNESIA [None]
  - HEADACHE [None]
  - MENTAL STATUS CHANGES [None]
  - NECK PAIN [None]
